FAERS Safety Report 9720114 (Version 1)
Quarter: 2013Q4

REPORT INFORMATION
  Report Type: Other
  Country: CI (occurrence: CI)
  Receive Date: 20131128
  Receipt Date: 20131128
  Transmission Date: 20140711
  Serious: Yes (Disabling, Other)
  Sender: FDA-Public Use
  Company Number: CI-BRISTOL-MYERS SQUIBB COMPANY-19859271

PATIENT
  Sex: 0

DRUGS (2)
  1. STOCRIN CAPS [Suspect]
     Indication: HIV INFECTION
     Route: 048
  2. TRUVADA [Concomitant]
     Dosage: 1DF:200MG/300MG

REACTIONS (2)
  - Renal failure [Unknown]
  - Nephrotic syndrome [Unknown]
